FAERS Safety Report 24277204 (Version 2)
Quarter: 2024Q3

REPORT INFORMATION
  Report Type: Spontaneous
  Country: BD (occurrence: BD)
  Receive Date: 20240903
  Receipt Date: 20240909
  Transmission Date: 20241016
  Serious: Yes (Death, Hospitalization)
  Sender: SANDOZ
  Company Number: BD-002147023-NVSC2024BD175767

PATIENT
  Age: 71 Year
  Sex: Female
  Weight: 36 kg

DRUGS (1)
  1. ACLASTA [Suspect]
     Active Substance: ZOLEDRONIC ACID
     Indication: Osteoporosis
     Dosage: 5 MG/100 ML-1S (ONCE A YEAR)
     Route: 042
     Dates: start: 202301, end: 202301

REACTIONS (1)
  - Road traffic accident [Fatal]

NARRATIVE: CASE EVENT DATE: 20231214
